FAERS Safety Report 9177463 (Version 2)
Quarter: 2013Q4

REPORT INFORMATION
  Report Type: Spontaneous
  Country: US (occurrence: US)
  Receive Date: 20130321
  Receipt Date: 20131106
  Transmission Date: 20140711
  Serious: Yes (Other)
  Sender: FDA-Public Use
  Company Number: US-BAYER-2013-031279

PATIENT
  Age: 28 Year
  Sex: Female
  Weight: 58.96 kg

DRUGS (3)
  1. MIRENA [Suspect]
     Indication: CONTRACEPTION
     Dosage: 20 MCG/24HR, CONT
     Route: 015
     Dates: start: 20090630, end: 20110209
  2. VICODIN [Concomitant]
     Indication: PAIN MANAGEMENT
     Route: 048
  3. IBUPROFEN [Concomitant]
     Indication: PAIN MANAGEMENT
     Route: 048

REACTIONS (10)
  - Uterine perforation [None]
  - Abdominal pain [None]
  - Genital haemorrhage [None]
  - Injury [None]
  - Abdominal pain lower [None]
  - Emotional distress [None]
  - Psychological trauma [None]
  - Coital bleeding [None]
  - Uterine injury [None]
  - Device failure [None]
